FAERS Safety Report 7807995-4 (Version None)
Quarter: 2011Q4

REPORT INFORMATION
  Report Type: 
  Country: None (occurrence: None)
  Receive Date: 20111011
  Receipt Date: 20111011
  Transmission Date: 20120403
  Serious: No
  Sender: FDA-Public Use
  Company Number: None

PATIENT
  Age: 68 Year
  Sex: Male
  Weight: 77.11 kg

DRUGS (1)
  1. COLGATE TOTAL [Suspect]
     Indication: DENTAL CLEANING
     Dates: start: 20110920, end: 20111002

REACTIONS (4)
  - TONGUE DISORDER [None]
  - TONGUE DISCOLOURATION [None]
  - GLOSSODYNIA [None]
  - TONGUE COATED [None]
